FAERS Safety Report 4715395-9 (Version None)
Quarter: 2005Q3

REPORT INFORMATION
  Report Type: 
  Country: None (occurrence: None)
  Receive Date: 20050715
  Receipt Date: 20050711
  Transmission Date: 20060218
  Serious: Yes (Death)
  Sender: FDA-Public Use
  Company Number: US-ABBOTT-05P-163-0305429-00

PATIENT
  Sex: Female
  Weight: 116.3 kg

DRUGS (4)
  1. SYNTHROID [Suspect]
     Indication: HYPOTHYROIDISM
     Route: 048
     Dates: end: 20050528
  2. VALSARTAN [Concomitant]
     Indication: HYPERTENSION
     Route: 048
  3. GLIBOMET [Concomitant]
     Indication: DIABETES MELLITUS
     Dosage: 2.5/500
     Route: 048
  4. PIOGLITAZONE HCL [Concomitant]
     Indication: DIABETES MELLITUS
     Route: 048
     Dates: end: 20050528

REACTIONS (1)
  - BRONCHITIS [None]
